FAERS Safety Report 7918184-7 (Version None)
Quarter: 2011Q4

REPORT INFORMATION
  Report Type: 
  Country: None (occurrence: None)
  Receive Date: 20111116
  Receipt Date: 20111108
  Transmission Date: 20120403
  Serious: Yes (Death, Hospitalization, Other)
  Sender: FDA-Public Use
  Company Number: US-ACTELION-A-NJ2011-52810

PATIENT

DRUGS (11)
  1. EFFEXOR [Concomitant]
  2. LASIX [Concomitant]
  3. DIGOXIN [Concomitant]
  4. TRICOR [Concomitant]
  5. TRACLEER [Suspect]
     Indication: PULMONARY ARTERIAL HYPERTENSION
     Dosage: UNK
     Route: 048
     Dates: start: 20100929, end: 20111020
  6. COUMADIN [Concomitant]
  7. ATENOLOL [Concomitant]
  8. OXYGEN [Concomitant]
  9. OMEPRAZOLE [Concomitant]
  10. LISINOPRIL [Concomitant]
  11. LORAZEPAM [Concomitant]

REACTIONS (6)
  - PNEUMONIA [None]
  - URINARY TRACT INFECTION [None]
  - CHRONIC OBSTRUCTIVE PULMONARY DISEASE [None]
  - PULMONARY MASS [None]
  - NEOPLASM MALIGNANT [None]
  - CARDIAC FAILURE ACUTE [None]
